FAERS Safety Report 7116076-7 (Version None)
Quarter: 2010Q4

REPORT INFORMATION
  Report Type: 
  Country: None (occurrence: None)
  Receive Date: 20101122
  Receipt Date: 20101110
  Transmission Date: 20110411
  Serious: Yes (Other)
  Sender: FDA-Public Use
  Company Number: BR-ROCHE-741236

PATIENT
  Age: 65 Year
  Sex: Female

DRUGS (5)
  1. HERCEPTIN [Suspect]
     Route: 065
     Dates: start: 20070601, end: 20080101
  2. HERCEPTIN [Suspect]
     Route: 065
     Dates: start: 20090101
  3. XELODA [Suspect]
     Route: 065
     Dates: start: 20070601, end: 20080101
  4. XELODA [Suspect]
     Route: 065
     Dates: start: 20080501, end: 20081201
  5. LAPATINIB [Suspect]
     Route: 065
     Dates: start: 20080501

REACTIONS (3)
  - HYPERAEMIA [None]
  - MALIGNANT NEOPLASM PROGRESSION [None]
  - SKIN NODULE [None]
